FAERS Safety Report 21233100 (Version 2)
Quarter: 2022Q3

REPORT INFORMATION
  Report Type: Spontaneous
  Country: JP (occurrence: JP)
  Receive Date: 20220819
  Receipt Date: 20220930
  Transmission Date: 20221027
  Serious: Yes (Hospitalization, Other)
  Sender: FDA-Public Use
  Company Number: JP-GLAXOSMITHKLINE-JP2022JPN067660

PATIENT

DRUGS (7)
  1. BENLYSTA [Suspect]
     Active Substance: BELIMUMAB
     Indication: Systemic lupus erythematosus
     Dosage: 200 MG, WE
     Route: 058
     Dates: start: 20210430, end: 20220414
  2. BENLYSTA [Suspect]
     Active Substance: BELIMUMAB
     Dosage: 200 MG, WE
     Route: 058
     Dates: start: 20220520
  3. CELLCEPT [Suspect]
     Active Substance: MYCOPHENOLATE MOFETIL
     Indication: Systemic lupus erythematosus
     Dosage: 1.5 G, 1D
     Route: 048
     Dates: start: 20211021
  4. PREDONINE [Concomitant]
     Active Substance: PREDNISOLONE
     Indication: Systemic lupus erythematosus
     Dosage: 5 MG
     Route: 048
  5. PLAQUENIL TABLETS (HYDROXYCHLOROQUINE SULFATE) [Concomitant]
     Indication: Systemic lupus erythematosus
     Dosage: 200 MG
     Route: 048
  6. ELDECALCITOL CAPSULES [Concomitant]
     Indication: Prophylaxis
     Dosage: 0.75 ?G
     Route: 048
  7. DAIPHEN TABLET [Concomitant]
     Indication: Systemic lupus erythematosus
     Dosage: 2 DF, WE
     Route: 048

REACTIONS (5)
  - Herpes zoster [Recovered/Resolved]
  - Bladder disorder [Recovered/Resolved]
  - Anorectal disorder [Recovered/Resolved]
  - Herpetic radiculopathy [Recovered/Resolved]
  - Immunosuppression [Unknown]

NARRATIVE: CASE EVENT DATE: 20220410
